FAERS Safety Report 22537650 (Version 1)
Quarter: 2023Q2

REPORT INFORMATION
  Report Type: Spontaneous
  Country: US (occurrence: None)
  Receive Date: 20230605
  Receipt Date: 20230605
  Transmission Date: 20230722
  Serious: Yes (Other)
  Sender: FDA-Public Use
  Company Number: None

PATIENT
  Age: 80 Year
  Sex: Male

DRUGS (2)
  1. MENTHOL [Suspect]
     Active Substance: MENTHOL
     Dosage: FREQUENCY : DAILY;?
  2. A-Kalm Zana Nutrition [Concomitant]

REACTIONS (3)
  - Erythema [None]
  - Inflammation [None]
  - Pain in extremity [None]
